FAERS Safety Report 5125674-1 (Version None)
Quarter: 2006Q4

REPORT INFORMATION
  Report Type: 
  Country: None (occurrence: None)
  Receive Date: 20061012
  Receipt Date: 20061002
  Transmission Date: 20070319
  Serious: Yes (Other)
  Sender: FDA-Public Use
  Company Number: PHHO2006BR16450

PATIENT
  Age: 47 Year
  Sex: Female

DRUGS (4)
  1. ZELMAC [Suspect]
     Indication: GASTROINTESTINAL DISORDER
     Dosage: UNK, QD
     Route: 048
  2. AMLODIPINE [Concomitant]
  3. PROPRANOLOL [Concomitant]
  4. SIMVASTATIN [Concomitant]

REACTIONS (10)
  - ABDOMINAL PAIN [None]
  - ASTHENIA [None]
  - BLOOD PRESSURE INCREASED [None]
  - CHILLS [None]
  - DIARRHOEA [None]
  - DIZZINESS [None]
  - DYSPNOEA [None]
  - LACRIMATION INCREASED [None]
  - TACHYCARDIA [None]
  - TREMOR [None]
